FAERS Safety Report 16460231 (Version 3)
Quarter: 2019Q3

REPORT INFORMATION
  Report Type: Spontaneous
  Country: US (occurrence: US)
  Receive Date: 20190620
  Receipt Date: 20190911
  Transmission Date: 20191004
  Serious: No
  Sender: FDA-Public Use
  Company Number: US-ALNYLAM PHARMACEUTICALS, INC.-ALN-2019-000375

PATIENT
  Sex: Male

DRUGS (2)
  1. ONPATTRO [Suspect]
     Active Substance: PATISIRAN SODIUM
     Indication: HEREDITARY NEUROPATHIC AMYLOIDOSIS
     Route: 042
  2. DIPHENHYDRAMINE. [Suspect]
     Active Substance: DIPHENHYDRAMINE
     Indication: PROPHYLAXIS

REACTIONS (8)
  - Condition aggravated [Unknown]
  - Hypoaesthesia [Unknown]
  - Dysstasia [Unknown]
  - Infusion related reaction [Unknown]
  - Insomnia [Unknown]
  - Pain in extremity [Unknown]
  - Muscle tightness [Unknown]
  - Fatigue [Unknown]
